FAERS Safety Report 26054148 (Version 2)
Quarter: 2025Q4

REPORT INFORMATION
  Report Type: Report from Study
  Country: EU (occurrence: EU)
  Receive Date: 20251117
  Receipt Date: 20251117
  Transmission Date: 20260117
  Serious: Yes (Life-Threatening, Other)
  Sender: PFIZER
  Company Number: EU-PFIZER INC-202500223961

PATIENT
  Age: 1 Day
  Sex: Male

DRUGS (4)
  1. CARBOPLATIN [Suspect]
     Active Substance: CARBOPLATIN
     Indication: Mass
     Dosage: 4.4 MG/KG, CYCLIC (DAYS 1-3 EVERY 21 DAYS), COURSE 1
  2. CARBOPLATIN [Suspect]
     Active Substance: CARBOPLATIN
     Dosage: 4.4 MG/KG, CYCLIC (DAYS 1-3 EVERY 21 DAYS), COURSE 2
  3. ETOPOSIDE [Suspect]
     Active Substance: ETOPOSIDE
     Indication: Mass
     Dosage: 3.3 MG/KG, CYCLIC (DAYS 1-3)
  4. ETOPOSIDE [Suspect]
     Active Substance: ETOPOSIDE
     Dosage: 3.3 MG/KG, CYCLIC (DAYS 1-3)

REACTIONS (3)
  - Haematotoxicity [Unknown]
  - Neonatal bacteraemia [Unknown]
  - Sepsis neonatal [Unknown]
